FAERS Safety Report 5445831-4 (Version None)
Quarter: 2007Q3

REPORT INFORMATION
  Report Type: 
  Country: None (occurrence: None)
  Receive Date: 20070904
  Receipt Date: 20070817
  Transmission Date: 20080115
  Serious: Yes (Death, Other)
  Sender: FDA-Public Use
  Company Number: 2007RR--09370

PATIENT
  Age: 76 Year
  Sex: Male

DRUGS (13)
  1. ATORVASTATIN CALCIUM [Suspect]
     Dosage: 40 MG, QD
  2. FLUCONAZOLE [Suspect]
     Dosage: 150 MG QD
  3. BISOPROLOL 10MG TABLETS (BISOPROLOL) [Concomitant]
  4. DIGOXIN [Concomitant]
  5. WARFARIN SODIUM [Concomitant]
  6. DOXICYCLINE (DOXICYCLINE) [Concomitant]
  7. FUCIDIC ACID (FUCIDIC ACID) [Concomitant]
  8. PREDNISOLONE RPG 20MG COMPRIME EFFERVESCENT SECABLE (PREDNISOLONE) [Concomitant]
  9. ESOMEPRAZOLE (ESOMEPRAZOLE) [Concomitant]
  10. PRAVASTATIN 40 MG TABLETS (PRAVASTATIN) [Concomitant]
  11. DOPAMINE HCL [Concomitant]
  12. NORADRENALINE (NORADRENALINE) [Concomitant]
  13. DOBUTAMINE (DOBUTAMINE) [Concomitant]

REACTIONS (3)
  - DRUG INTERACTION [None]
  - MULTI-ORGAN FAILURE [None]
  - RHABDOMYOLYSIS [None]
